FAERS Safety Report 11148708 (Version 1)
Quarter: 2015Q2

REPORT INFORMATION
  Report Type: Report from Study
  Country: US (occurrence: US)
  Receive Date: 20150529
  Receipt Date: 20150529
  Transmission Date: 20150821
  Serious: Yes (Other)
  Sender: FDA-Public Use
  Company Number: US-SANOFI-AVENTIS-2013SA057284

PATIENT
  Age: 75 Year
  Sex: Female
  Weight: 62.14 kg

DRUGS (11)
  1. PANTHENOL/RETINOL/THIAMINE HYDROCHLORIDE/ASCORBIC ACID/ERGOCALCIFEROL/FOLIC ACID/RIBOFLAVIN/NICOTINA [Concomitant]
  2. WELLBUTRIN [Concomitant]
     Active Substance: BUPROPION HYDROCHLORIDE
     Indication: DEPRESSION
     Route: 065
  3. CELEXA [Concomitant]
     Active Substance: CITALOPRAM HYDROBROMIDE
     Indication: DEPRESSION
     Route: 065
  4. GENERAL NUTRIENTS [Concomitant]
  5. VITAMIN D3 [Concomitant]
     Active Substance: CHOLECALCIFEROL
     Indication: MULTIPLE SCLEROSIS
     Dosage: DOSE:8000 UNIT(S)
     Route: 065
  6. CALCIUM CITRATE [Concomitant]
     Active Substance: CALCIUM CITRATE
     Route: 065
  7. BIOTIN [Concomitant]
     Active Substance: BIOTIN
  8. SYNTHROID [Concomitant]
     Active Substance: LEVOTHYROXINE SODIUM
     Indication: HYPOTHYROIDISM
     Route: 065
  9. ZINC/ASCORBIC ACID/COPPER/CYSTINE/MANGANESE/CALCIUM ASCORBATE/BETACAROTENE/TOCOPHEROL [Concomitant]
  10. AUBAGIO [Suspect]
     Active Substance: TERIFLUNOMIDE
     Indication: MULTIPLE SCLEROSIS
     Route: 048
     Dates: start: 20130518
  11. CALCIUM [Concomitant]
     Active Substance: CALCIUM

REACTIONS (12)
  - Paraesthesia [Recovering/Resolving]
  - Multiple sclerosis relapse [Unknown]
  - Product packaging issue [Unknown]
  - Multiple sclerosis [Not Recovered/Not Resolved]
  - Blood pressure increased [Unknown]
  - Gastrointestinal disorder [Recovered/Resolved]
  - Stress [Unknown]
  - Myocardial necrosis marker increased [Unknown]
  - Alopecia [Unknown]
  - Diarrhoea [Unknown]
  - Rotator cuff syndrome [Unknown]
  - Back pain [Unknown]

NARRATIVE: CASE EVENT DATE: 201306
